FAERS Safety Report 9124238 (Version 3)
Quarter: 2013Q1

REPORT INFORMATION
  Report Type: Spontaneous
  Country: JP (occurrence: JP)
  Receive Date: 20130227
  Receipt Date: 20130311
  Transmission Date: 20140127
  Serious: No
  Sender: FDA-Public Use
  Company Number: JP-UCBSA-079189

PATIENT
  Sex: Male

DRUGS (1)
  1. E KEPPRA [Suspect]
     Dosage: 1000 MG IN THE MORNING AND 500 MG IN THE EVENING
     Route: 048

REACTIONS (1)
  - Diarrhoea [Unknown]
